FAERS Safety Report 10133383 (Version 1)
Quarter: 2014Q2

REPORT INFORMATION
  Report Type: Spontaneous
  Country: US (occurrence: US)
  Receive Date: 20140428
  Receipt Date: 20140428
  Transmission Date: 20141212
  Serious: No
  Sender: FDA-Public Use
  Company Number: US-PFIZER INC-2014116523

PATIENT
  Age: 67 Year
  Sex: Female
  Weight: 58.96 kg

DRUGS (2)
  1. LYRICA [Suspect]
     Indication: PAIN IN EXTREMITY
     Dosage: 150 MG, 2X/DAY
     Dates: start: 201404, end: 201404
  2. LYRICA [Suspect]
     Indication: HERPES ZOSTER
     Dosage: 300 MG, 2X/DAY
     Dates: start: 201404

REACTIONS (3)
  - Sleep disorder [Not Recovered/Not Resolved]
  - Somnolence [Not Recovered/Not Resolved]
  - Feeling abnormal [Not Recovered/Not Resolved]
